FAERS Safety Report 16090919 (Version 1)
Quarter: 2019Q1

REPORT INFORMATION
  Report Type: Spontaneous
  Country: AR (occurrence: AR)
  Receive Date: 20190319
  Receipt Date: 20190319
  Transmission Date: 20190418
  Serious: Yes (Hospitalization)
  Sender: FDA-Public Use
  Company Number: AR-PFIZER INC-2019115814

PATIENT
  Age: 48 Year
  Sex: Female

DRUGS (2)
  1. SUTENT [Suspect]
     Active Substance: SUNITINIB MALATE
     Indication: METASTATIC RENAL CELL CARCINOMA
     Dosage: 50 MG, UNK
     Dates: start: 20181210, end: 20181222
  2. SUTENT [Suspect]
     Active Substance: SUNITINIB MALATE
     Dosage: 50 MG (2 DAYS ON AND 1 DAY OFF, FOR 14 DAYS AND THEN TO REST 7 DAYS)

REACTIONS (3)
  - White blood cell count decreased [Recovering/Resolving]
  - Blister [Recovering/Resolving]
  - Oral mucosal blistering [Recovering/Resolving]

NARRATIVE: CASE EVENT DATE: 2018
